FAERS Safety Report 9045588 (Version 1)
Quarter: 2013Q1

REPORT INFORMATION
  Report Type: Report from Study
  Country: US (occurrence: US)
  Receive Date: 20130131
  Receipt Date: 20130131
  Transmission Date: 20140127
  Serious: No
  Sender: FDA-Public Use
  Company Number: US-ABBOTT-12P-163-1014138-00

PATIENT
  Age: 49 Year
  Sex: Female

DRUGS (10)
  1. HUMIRA [Suspect]
     Indication: RHEUMATOID ARTHRITIS
     Dates: start: 20121026
  2. METHOTREXATE [Concomitant]
     Indication: PRODUCT USED FOR UNKNOWN INDICATION
     Dosage: 5 PILLS EVERY WEEK
  3. CELEBREX [Concomitant]
     Indication: PAIN
  4. PLAQUENIL [Concomitant]
     Indication: PRODUCT USED FOR UNKNOWN INDICATION
  5. CALTRATE [Concomitant]
     Indication: PRODUCT USED FOR UNKNOWN INDICATION
     Dosage: EVERY DAY
  6. FOLIC ACID [Concomitant]
     Indication: PRODUCT USED FOR UNKNOWN INDICATION
     Dosage: EVERY DAY
  7. GLUCOSAMINE [Concomitant]
     Indication: ARTHRITIS
     Dosage: EVERY DAY
  8. CHONDROITIN [Concomitant]
     Indication: ARTHRITIS
     Dosage: EVERY DAY
  9. ESTRADIOL [Concomitant]
     Indication: HORMONE REPLACEMENT THERAPY
  10. ZYRTEC [Concomitant]
     Indication: SEASONAL ALLERGY
     Dosage: EVERY DAY

REACTIONS (4)
  - Injection site pruritus [Not Recovered/Not Resolved]
  - Rash [Not Recovered/Not Resolved]
  - Nasopharyngitis [Not Recovered/Not Resolved]
  - Injection site vesicles [Not Recovered/Not Resolved]
